FAERS Safety Report 14608384 (Version 1)
Quarter: 2018Q1

REPORT INFORMATION
  Report Type: Spontaneous
  Country: US (occurrence: US)
  Receive Date: 20180306
  Receipt Date: 20180306
  Transmission Date: 20180509
  Serious: No
  Sender: FDA-Public Use
  Company Number: None

PATIENT
  Age: 68 Year
  Sex: Male

DRUGS (1)
  1. TESTOSTERONE GEL 50MG/59 1%, 50MG/5G PACKET 1% % [Suspect]
     Active Substance: TESTOSTERONE
     Route: 062
     Dates: start: 20180101, end: 20180130

REACTIONS (2)
  - Blood testosterone decreased [None]
  - Product substitution issue [None]

NARRATIVE: CASE EVENT DATE: 20180101
